FAERS Safety Report 7279239-6 (Version None)
Quarter: 2011Q1

REPORT INFORMATION
  Report Type: 
  Country: None (occurrence: None)
  Receive Date: 20110207
  Receipt Date: 20110127
  Transmission Date: 20110831
  Serious: Yes (Hospitalization)
  Sender: FDA-Public Use
  Company Number: DE-PFIZER INC-2011025092

PATIENT
  Age: 86 Year
  Sex: Female

DRUGS (7)
  1. SALBUTAMOL [Concomitant]
  2. VIANI [Concomitant]
     Dosage: UNK
     Dates: start: 20100531
  3. AMIODARONE HCL [Suspect]
     Indication: ATRIAL FIBRILLATION
     Dosage: 200 MG DAILY
     Route: 048
     Dates: start: 20041201, end: 20100707
  4. LOSARTAN POTASSIUM AND HYDROCHLOROTHIAZIDE [Concomitant]
  5. MARCUMAR [Concomitant]
  6. TORASEMIDE [Concomitant]
  7. THYRONAJOD [Concomitant]

REACTIONS (3)
  - COUGH [None]
  - EOSINOPHILIA MYALGIA SYNDROME [None]
  - INTERSTITIAL LUNG DISEASE [None]
